FAERS Safety Report 6554850-6 (Version None)
Quarter: 2010Q1

REPORT INFORMATION
  Report Type: 
  Country: None (occurrence: None)
  Receive Date: 20100127
  Receipt Date: 20100122
  Transmission Date: 20100710
  Serious: Yes (Death, Hospitalization)
  Sender: FDA-Public Use
  Company Number: US-GILEAD-2009-0025263

PATIENT
  Sex: Female
  Weight: 124.85 kg

DRUGS (21)
  1. LETAIRIS [Suspect]
     Indication: PULMONARY ARTERIAL HYPERTENSION
     Route: 048
     Dates: start: 20091005
  2. LETAIRIS [Suspect]
     Route: 048
     Dates: start: 20081219
  3. SILDENAFIL [Concomitant]
  4. DIGOXIN [Concomitant]
     Dates: start: 20090603
  5. INDERAL [Concomitant]
  6. SPIRONOLACTONE [Concomitant]
  7. LIPITOR [Concomitant]
  8. LASIX [Concomitant]
  9. BUMEX [Concomitant]
  10. ZOLOFT [Concomitant]
  11. NEURONTIN [Concomitant]
  12. DETROL LA [Concomitant]
  13. RESTORIL [Concomitant]
  14. ARIMIDEX [Concomitant]
  15. BUSPAR [Concomitant]
  16. ZYRTEC [Concomitant]
  17. AMOXICILLIN [Concomitant]
  18. LEVOXYL [Concomitant]
  19. BENADRYL [Concomitant]
  20. POTASSIUM CHLORIDE [Concomitant]
  21. MULTI-VITAMIN [Concomitant]

REACTIONS (2)
  - ACUTE RESPIRATORY FAILURE [None]
  - DEATH [None]
